FAERS Safety Report 16085357 (Version 3)
Quarter: 2020Q2

REPORT INFORMATION
  Report Type: Spontaneous
  Country: US (occurrence: US)
  Receive Date: 20190318
  Receipt Date: 20200522
  Transmission Date: 20200713
  Serious: No
  Sender: FDA-Public Use
  Company Number: US-LUNDBECK-DKLU2061996

PATIENT
  Age: 33 Year
  Sex: Female

DRUGS (3)
  1. NORTHERA [Suspect]
     Active Substance: DROXIDOPA
     Indication: AUTONOMIC NEUROPATHY
     Route: 048
     Dates: start: 20180419
  2. NORTHERA [Suspect]
     Active Substance: DROXIDOPA
     Indication: ORTHOSTATIC HYPOTENSION
  3. NORTHERA [Suspect]
     Active Substance: DROXIDOPA
     Indication: DIZZINESS

REACTIONS (3)
  - Speech disorder [Unknown]
  - Tongue movement disturbance [Unknown]
  - Paraesthesia [Unknown]
